FAERS Safety Report 6081504-5 (Version None)
Quarter: 2009Q1

REPORT INFORMATION
  Report Type: 
  Country: None (occurrence: None)
  Receive Date: 20090218
  Receipt Date: 20090206
  Transmission Date: 20090719
  Serious: Yes (Disabling)
  Sender: FDA-Public Use
  Company Number: DK-NOVOPROD-284180

PATIENT
  Sex: Male
  Weight: 22.5 kg

DRUGS (1)
  1. NORDITROPIN NORDIFLEX [Suspect]
     Indication: PRADER-WILLI SYNDROME
     Dosage: .4 MG, QD
     Route: 058
     Dates: start: 20040603

REACTIONS (1)
  - TONSILLITIS [None]
